FAERS Safety Report 5729383-7 (Version None)
Quarter: 2008Q2

REPORT INFORMATION
  Report Type: 
  Country: None (occurrence: None)
  Receive Date: 20080506
  Receipt Date: 20080421
  Transmission Date: 20081010
  Serious: Yes (Other)
  Sender: FDA-Public Use
  Company Number: US-PFIZER INC-2008038329

PATIENT
  Sex: Female
  Weight: 86.363 kg

DRUGS (5)
  1. CHANTIX [Suspect]
     Indication: SMOKING CESSATION THERAPY
     Dosage: TEXT:EVERY DAY
     Dates: start: 20071001, end: 20080101
  2. SYNTHROID [Concomitant]
     Indication: THYROID DISORDER
  3. FEMHRT [Concomitant]
  4. ZOLOFT [Concomitant]
     Indication: DEPRESSION
  5. QVAR 40 [Concomitant]

REACTIONS (2)
  - DEPRESSION [None]
  - TOOTH ABSCESS [None]
